FAERS Safety Report 6838882-6 (Version None)
Quarter: 2010Q3

REPORT INFORMATION
  Report Type: 
  Country: None (occurrence: None)
  Receive Date: 20100708
  Receipt Date: 20100623
  Transmission Date: 20110219
  Serious: Yes (Other)
  Sender: FDA-Public Use
  Company Number: 2010-2235

PATIENT
  Sex: Male

DRUGS (13)
  1. DYSPORT [Suspect]
     Indication: MUSCLE SPASTICITY
     Dosage: (SINGLE CYCLE)
  2. RANITIDINE [Concomitant]
  3. DOXAZOSIN MESYLATE [Concomitant]
  4. ASPIRIN [Concomitant]
  5. FERROUS SULPHINE (FERROUS SULFATE) [Concomitant]
  6. TRIMETHOPRIM + SULFAMETHOXAZOLE [Concomitant]
  7. VALGANCICLOVIR HCL [Concomitant]
  8. PRAVASTATIN [Concomitant]
  9. PREDNISONE TAB [Concomitant]
  10. PREDNISONE TAB [Concomitant]
  11. MYCOPHENOLATE MOFETIL [Concomitant]
  12. TACROLIMUS [Concomitant]
  13. ALENDRONIC ACID (ALENDRONIC ACID) [Concomitant]

REACTIONS (2)
  - CARDIAC DISORDER [None]
  - HEART TRANSPLANT [None]
